FAERS Safety Report 9059444 (Version 1)
Quarter: 2013Q1

REPORT INFORMATION
  Report Type: Spontaneous
  Country: US (occurrence: US)
  Receive Date: 20130212
  Receipt Date: 20130212
  Transmission Date: 20140127
  Serious: No
  Sender: FDA-Public Use
  Company Number: US-009507513-1302USA001640

PATIENT
  Sex: 0

DRUGS (2)
  1. JANUVIA [Suspect]
     Route: 048
  2. NOVOLOG [Suspect]

REACTIONS (1)
  - Blood glucose fluctuation [Unknown]
